FAERS Safety Report 23257959 (Version 1)
Quarter: 2023Q4

REPORT INFORMATION
  Report Type: Spontaneous
  Country: US (occurrence: US)
  Receive Date: 20231204
  Receipt Date: 20231204
  Transmission Date: 20240110
  Serious: Yes (Hospitalization)
  Sender: FDA-Public Use
  Company Number: US-BEXIMCO-2023BEX00080

PATIENT
  Age: 50 Year
  Sex: Male

DRUGS (5)
  1. BACLOFEN [Suspect]
     Active Substance: BACLOFEN
     Dosage: 10 MG, 2X/DAY
  2. AMLODIPINE [Concomitant]
     Active Substance: AMLODIPINE BESYLATE
  3. CARVEDILOL [Concomitant]
     Active Substance: CARVEDILOL
  4. LOSARTAN [Concomitant]
     Active Substance: LOSARTAN
  5. SEVELAMER [Concomitant]
     Active Substance: SEVELAMER

REACTIONS (2)
  - Mental status changes [Recovering/Resolving]
  - Toxicity to various agents [Unknown]
